FAERS Safety Report 7673903-2 (Version None)
Quarter: 2011Q3

REPORT INFORMATION
  Report Type: 
  Country: None (occurrence: None)
  Receive Date: 20110810
  Receipt Date: 20110314
  Transmission Date: 20111222
  Serious: No
  Sender: FDA-Public Use
  Company Number: US-GLAXOSMITHKLINE-A0918023A

PATIENT
  Age: 51 Year
  Sex: Female

DRUGS (3)
  1. BLOOD PRESSURE MEDICATION [Concomitant]
  2. PAXIL [Suspect]
     Indication: DEPRESSION
     Dosage: 10MG PER DAY
     Route: 048
  3. ESTROGENIC SUBSTANCE [Concomitant]
     Route: 048

REACTIONS (3)
  - TINNITUS [None]
  - LABYRINTHITIS [None]
  - VERTIGO [None]
